FAERS Safety Report 8111448-6 (Version None)
Quarter: 2012Q1

REPORT INFORMATION
  Report Type: 
  Country: None (occurrence: None)
  Receive Date: 20120203
  Receipt Date: 20111219
  Transmission Date: 20120608
  Serious: Yes (Other)
  Sender: FDA-Public Use
  Company Number: US-GLAXOSMITHKLINE-A0958659A

PATIENT
  Age: 71 Year
  Sex: Female

DRUGS (5)
  1. LAMOTRIGINE [Suspect]
     Indication: CONVULSION
     Dosage: 100MG FIVE TIMES PER DAY
     Route: 048
     Dates: start: 20090801, end: 20090801
  2. LIPITOR [Concomitant]
  3. LEVOTHYROXINE SODIUM [Concomitant]
  4. TOPIRAMATE [Concomitant]
  5. CLONAZEPAM [Concomitant]

REACTIONS (1)
  - CONVULSION [None]
